FAERS Safety Report 4609172-7 (Version None)
Quarter: 2005Q1

REPORT INFORMATION
  Report Type: 
  Country: None (occurrence: None)
  Receive Date: 20050314
  Receipt Date: 20050224
  Transmission Date: 20050727
  Serious: Yes (Hospitalization)
  Sender: FDA-Public Use
  Company Number: DSA_25983_2005

PATIENT
  Age: 63 Year
  Sex: Female

DRUGS (10)
  1. TAVOR [Suspect]
     Dosage: 6 MG Q DAY
     Dates: start: 20031211
  2. ARICEPT [Suspect]
     Dosage: 10 MG Q DAY
  3. GEODON [Suspect]
     Dosage: 80 MG Q DAY
     Dates: start: 20031103, end: 20040122
  4. GEODON [Suspect]
     Dosage: 160 MG Q DAY
     Dates: end: 20031102
  5. HALDOL [Suspect]
     Dosage: 6 MG Q DAY
     Dates: start: 20040118, end: 20040121
  6. SEROQUEL [Suspect]
     Dosage: 400 MG Q DAY
     Dates: start: 20031211, end: 20040116
  7. THROMBRAN [Suspect]
     Dosage: 400 MG Q DAY
     Dates: start: 20040106
  8. ZELDOX [Suspect]
     Dosage: DF
  9. QUILONUM [Concomitant]
  10. ZYPREXA [Concomitant]

REACTIONS (6)
  - BLOOD GLUCOSE INCREASED [None]
  - DRUG INTERACTION [None]
  - HAEMODIALYSIS [None]
  - NEUROLEPTIC MALIGNANT SYNDROME [None]
  - RENAL FAILURE ACUTE [None]
  - RHABDOMYOLYSIS [None]
